FAERS Safety Report 4974277-8 (Version None)
Quarter: 2006Q2

REPORT INFORMATION
  Report Type: 
  Country: None (occurrence: None)
  Receive Date: 20060417
  Receipt Date: 20050829
  Transmission Date: 20061013
  Serious: Yes (Hospitalization)
  Sender: FDA-Public Use
  Company Number: US-MERCK-0508USA04604

PATIENT
  Age: 44 Year
  Sex: Female

DRUGS (1)
  1. VIOXX [Suspect]
     Route: 048

REACTIONS (10)
  - ANAEMIA [None]
  - BUNDLE BRANCH BLOCK LEFT [None]
  - CHEST PAIN [None]
  - DIARRHOEA [None]
  - HYPOKALAEMIA [None]
  - INJURY [None]
  - LOCALISED INFECTION [None]
  - NAUSEA [None]
  - SHOULDER PAIN [None]
  - VOMITING [None]
